FAERS Safety Report 6993389-0 (Version None)
Quarter: 2010Q3

REPORT INFORMATION
  Report Type: 
  Country: None (occurrence: None)
  Receive Date: 20100917
  Receipt Date: 20100427
  Transmission Date: 20110219
  Serious: No
  Sender: FDA-Public Use
  Company Number: US-ASTRAZENECA-2010SE19077

PATIENT
  Sex: Male

DRUGS (4)
  1. SEROQUEL [Suspect]
     Indication: BIPOLAR DISORDER
     Route: 048
     Dates: start: 20020101, end: 20100401
  2. SEROQUEL [Suspect]
     Indication: SCHIZOPHRENIA
     Route: 048
     Dates: start: 20020101, end: 20100401
  3. SEROQUEL [Suspect]
     Route: 048
     Dates: end: 20100201
  4. SEROQUEL [Suspect]
     Route: 048
     Dates: end: 20100201

REACTIONS (4)
  - DRUG DOSE OMISSION [None]
  - MOOD SWINGS [None]
  - MUSCLE TWITCHING [None]
  - NIGHTMARE [None]
